FAERS Safety Report 4350125-4 (Version None)
Quarter: 2004Q2

REPORT INFORMATION
  Report Type: 
  Country: None (occurrence: None)
  Receive Date: 20040429
  Receipt Date: 20040412
  Transmission Date: 20050107
  Serious: Yes (Hospitalization)
  Sender: FDA-Public Use
  Company Number: FR-ROCHE-364096

PATIENT
  Age: 35 Year
  Sex: Female

DRUGS (2)
  1. LOXEN [Suspect]
     Indication: PREMATURE LABOUR
     Dosage: TREATMENT STARTED AT 3MG/HR AN INCREASED TO A MAXIMUM OF 6MG/HR.
     Route: 042
     Dates: start: 20020519, end: 20020523
  2. CELESTENE [Suspect]
     Indication: PREMATURE LABOUR
     Route: 030
     Dates: start: 20020519, end: 20020523

REACTIONS (6)
  - ACUTE PULMONARY OEDEMA [None]
  - COMPLICATIONS OF MATERNAL EXPOSURE TO THERAPEUTIC DRUGS [None]
  - EJECTION FRACTION DECREASED [None]
  - HYPOKINESIA [None]
  - PREMATURE BABY [None]
  - PULMONARY EMBOLISM [None]
